FAERS Safety Report 9226429 (Version 1)
Quarter: 2013Q2

REPORT INFORMATION
  Report Type: Spontaneous
  Country: NL (occurrence: NL)
  Receive Date: 20130411
  Receipt Date: 20130411
  Transmission Date: 20140414
  Serious: Yes (Other)
  Sender: FDA-Public Use
  Company Number: PHHY2012NL112365

PATIENT
  Age: 50 Year
  Sex: Female

DRUGS (4)
  1. ZOMETA [Suspect]
     Indication: BREAST CANCER METASTATIC
     Dosage: 4 MG/ 100 ML, ONCE PER 28 DAYS
     Route: 042
  2. ZOMETA [Suspect]
     Dosage: 4 MG/ 100 ML, ONCE PER 28 DAYS
     Route: 042
     Dates: start: 20121009
  3. ZOMETA [Suspect]
     Dosage: 4 MG/ 100 ML, ONCE PER 28 DAYS
     Route: 042
     Dates: start: 20121106
  4. ZOMETA [Suspect]
     Dosage: 4 MG/ 100 ML, ONCE PER 28 DAYS
     Route: 042
     Dates: start: 20130318

REACTIONS (3)
  - Abscess jaw [Unknown]
  - Osteomyelitis [Unknown]
  - Tooth disorder [Not Recovered/Not Resolved]
